FAERS Safety Report 19321215 (Version 1)
Quarter: 2021Q2

REPORT INFORMATION
  Report Type: Spontaneous
  Country: US (occurrence: US)
  Receive Date: 20210528
  Receipt Date: 20210528
  Transmission Date: 20210717
  Serious: No
  Sender: FDA-Public Use
  Company Number: None

PATIENT
  Age: 89 Year
  Sex: Male

DRUGS (1)
  1. PHENYTOIN (GENERIC?MYLAN) (PHENYTOIN (GENERIC) NA, EXTENDED 100MG CAP) [Suspect]
     Active Substance: PHENYTOIN SODIUM
     Route: 048
     Dates: start: 20210408, end: 20210524

REACTIONS (8)
  - Rash [None]
  - Swelling face [None]
  - Swollen tongue [None]
  - Lip swelling [None]
  - Angioedema [None]
  - Dysphagia [None]
  - Anaphylactic reaction [None]
  - Leukocytosis [None]

NARRATIVE: CASE EVENT DATE: 20210524
